FAERS Safety Report 4907773-X (Version None)
Quarter: 2006Q1

REPORT INFORMATION
  Report Type: 
  Country: None (occurrence: None)
  Receive Date: 20060208
  Receipt Date: 20060208
  Transmission Date: 20060701
  Serious: Yes (Hospitalization)
  Sender: FDA-Public Use
  Company Number: None

PATIENT
  Age: 47 Year
  Sex: Male

DRUGS (7)
  1. PEGYLATED  INTERFERON  120 MCG [Suspect]
     Indication: HEPATITIS C
     Dosage: 120 MCG QWK
     Dates: start: 20050722
  2. RIBAVIRIN [Suspect]
     Indication: HEPATITIS C
     Dosage: 600 MG Q AM 400 MG QPM
     Dates: start: 20050722
  3. EPOGEN [Concomitant]
  4. HYDROCHLOROTHIAZIDE [Concomitant]
  5. LISINOPRIL [Concomitant]
  6. ASPIRIN [Concomitant]
  7. GLYBURIDE [Concomitant]

REACTIONS (1)
  - ANAEMIA [None]
